FAERS Safety Report 5058930-6 (Version None)
Quarter: 2006Q2

REPORT INFORMATION
  Report Type: 
  Country: None (occurrence: None)
  Receive Date: 20060629
  Receipt Date: 20060316
  Transmission Date: 20061013
  Serious: No
  Sender: FDA-Public Use
  Company Number: PHEH2006US03573

PATIENT
  Age: 79 Year
  Sex: Female

DRUGS (1)
  1. ENABLEX [Suspect]
     Indication: HYPERTONIC BLADDER
     Dosage: 7.5 MG, QD
     Dates: start: 20051101, end: 20060101

REACTIONS (3)
  - CONSTIPATION [None]
  - DRY MOUTH [None]
  - RASH GENERALISED [None]
